FAERS Safety Report 7553894-5 (Version None)
Quarter: 2011Q2

REPORT INFORMATION
  Report Type: 
  Country: None (occurrence: None)
  Receive Date: 20110614
  Receipt Date: 20110614
  Transmission Date: 20111010
  Serious: Yes (Hospitalization)
  Sender: FDA-Public Use
  Company Number: None

PATIENT
  Sex: Female
  Weight: 57.72 kg

DRUGS (2)
  1. PEMETREXED [Suspect]
     Dosage: 805 MG
  2. CISPLATIN [Suspect]
     Dosage: 81 MG

REACTIONS (8)
  - HAEMOGLOBIN DECREASED [None]
  - NAUSEA [None]
  - BLOOD GLUCOSE INCREASED [None]
  - DYSURIA [None]
  - HYDROMETRA [None]
  - HYDRONEPHROSIS [None]
  - UTERINE OBSTRUCTION [None]
  - ABDOMINAL PAIN [None]
